FAERS Safety Report 16163953 (Version 11)
Quarter: 2020Q1

REPORT INFORMATION
  Report Type: Spontaneous
  Country: US (occurrence: US)
  Receive Date: 20190405
  Receipt Date: 20200303
  Transmission Date: 20200409
  Serious: Yes (Death, Hospitalization, Congenital Anomaly, Other)
  Sender: FDA-Public Use
  Company Number: PHEH2019US014816

PATIENT
  Sex: Female

DRUGS (2)
  1. ZOFRAN ODT [Suspect]
     Active Substance: ONDANSETRON HYDROCHLORIDE
     Indication: FOETAL EXPOSURE DURING PREGNANCY
     Dosage: MOTHER^S DOSE: 1 DF, Q8H, PRN
     Route: 064
  2. ZOFRAN [Suspect]
     Active Substance: ONDANSETRON HYDROCHLORIDE
     Indication: FOETAL EXPOSURE DURING PREGNANCY
     Dosage: MOTHER^S DOSE: 08 MG, Q8H, PRN
     Route: 064

REACTIONS (119)
  - Acute lymphocytic leukaemia [Fatal]
  - Pulmonary valve stenosis [Unknown]
  - Spleen malformation [Unknown]
  - Transposition of the great vessels [Unknown]
  - Pulmonary hypoplasia [Unknown]
  - Intestinal malrotation [Unknown]
  - Pulmonary valve incompetence [Unknown]
  - Cellulitis [Unknown]
  - Pyrexia [Unknown]
  - Developmental delay [Unknown]
  - Skin discolouration [Unknown]
  - Hypovolaemia [Unknown]
  - Dysphonia [Unknown]
  - Left ventricular dysfunction [Unknown]
  - Hypotension [Unknown]
  - Ventricular hypoplasia [Unknown]
  - Pleural effusion [Unknown]
  - Conductive deafness [Unknown]
  - Hypokalaemia [Unknown]
  - Syncope [Unknown]
  - Pulmonary oedema [Unknown]
  - Seborrhoeic keratosis [Unknown]
  - Migraine [Unknown]
  - Otitis media acute [Unknown]
  - Pharyngitis [Unknown]
  - Upper respiratory tract infection [Unknown]
  - Chest pain [Unknown]
  - Gastrooesophageal reflux disease [Unknown]
  - Hypocalcaemia [Unknown]
  - Generalised oedema [Unknown]
  - Congenital foot malformation [Unknown]
  - Respiratory syncytial virus bronchiolitis [Unknown]
  - Injury [Not Recovered/Not Resolved]
  - Right ventricular hypertrophy [Unknown]
  - Photophobia [Unknown]
  - Malaise [Unknown]
  - Asthma [Unknown]
  - Dyspnoea exertional [Unknown]
  - Back pain [Unknown]
  - Constipation [Unknown]
  - Acne [Unknown]
  - Hypophosphataemia [Unknown]
  - Anaemia macrocytic [Unknown]
  - Congenital anomaly [Unknown]
  - Heart disease congenital [Unknown]
  - Dextrocardia [Unknown]
  - Pancytopenia [Unknown]
  - Bradycardia [Unknown]
  - Foetal exposure during pregnancy [Unknown]
  - Deformity [Unknown]
  - Emotional distress [Unknown]
  - Nasal congestion [Unknown]
  - Cyanosis [Unknown]
  - Dizziness [Unknown]
  - Diarrhoea [Unknown]
  - Ill-defined disorder [Unknown]
  - Speech disorder [Unknown]
  - Language disorder [Unknown]
  - Abdominal pain [Unknown]
  - Orthostatic hypotension [Unknown]
  - Feeling abnormal [Unknown]
  - Atelectasis [Unknown]
  - Double outlet right ventricle [Unknown]
  - Atrioventricular septal defect [Unknown]
  - Atrial septal defect [Unknown]
  - Lactic acidosis [Unknown]
  - Anhedonia [Unknown]
  - Cough [Unknown]
  - Cerumen impaction [Unknown]
  - Oropharyngeal pain [Unknown]
  - Dermatitis atopic [Unknown]
  - Palpitations [Unknown]
  - Hypercapnia [Unknown]
  - Transfusion-related circulatory overload [Fatal]
  - Ventricular septal defect [Unknown]
  - Heterotaxia [Unknown]
  - Pulmonary artery atresia [Unknown]
  - Asplenia [Unknown]
  - Tricuspid valve incompetence [Unknown]
  - Rectal haemorrhage [Unknown]
  - Hypoxia [Unknown]
  - Gastrointestinal haemorrhage [Unknown]
  - Haematochezia [Unknown]
  - Pain [Unknown]
  - Pain in extremity [Unknown]
  - Cardiomegaly [Unknown]
  - Sinusitis [Unknown]
  - Coordination abnormal [Unknown]
  - Decreased appetite [Unknown]
  - Hepatic enzyme increased [Unknown]
  - Fluid overload [Unknown]
  - Neutropenic colitis [Fatal]
  - Mitral valve incompetence [Unknown]
  - Respiratory distress [Unknown]
  - Chills [Unknown]
  - Vomiting [Unknown]
  - Weight decreased [Unknown]
  - Ear pain [Unknown]
  - Snoring [Unknown]
  - Bundle branch block right [Unknown]
  - Abnormal weight gain [Unknown]
  - Paraesthesia [Unknown]
  - Hypoalbuminaemia [Unknown]
  - Tachypnoea [Unknown]
  - Cardiogenic shock [Fatal]
  - Laevocardia [Unknown]
  - Right aortic arch [Unknown]
  - Mitral valve stenosis [Unknown]
  - Arrhythmia [Unknown]
  - Acute respiratory failure [Unknown]
  - Dyspnoea [Unknown]
  - Sleep apnoea syndrome [Unknown]
  - Wheezing [Unknown]
  - Dehydration [Unknown]
  - Right atrial dilatation [Unknown]
  - Sinus tachycardia [Unknown]
  - Fatigue [Unknown]
  - Hypoaesthesia [Unknown]
  - Ovarian cyst [Unknown]
